FAERS Safety Report 18285471 (Version 3)
Quarter: 2020Q4

REPORT INFORMATION
  Report Type: Report from Study
  Country: US (occurrence: US)
  Receive Date: 20200918
  Receipt Date: 20201120
  Transmission Date: 20210113
  Serious: Yes (Hospitalization, Other)
  Sender: FDA-Public Use
  Company Number: US-JNJFOC-A-NJ2019-195788

PATIENT
  Age: 45 Year
  Sex: Male
  Weight: 66.21 kg

DRUGS (10)
  1. VELETRI [Suspect]
     Active Substance: EPOPROSTENOL
     Dosage: 8 NG/G, PER MIN
     Route: 042
  2. VELETRI [Suspect]
     Active Substance: EPOPROSTENOL
     Dosage: 22 NG/KG/MIN
     Route: 042
  3. VELETRI [Suspect]
     Active Substance: EPOPROSTENOL
     Indication: PULMONARY ARTERIAL HYPERTENSION
     Dosage: 17 NG/KG, PER MIN
     Route: 042
  4. VELETRI [Suspect]
     Active Substance: EPOPROSTENOL
     Dosage: 6 NG/KG, PER MIN
     Route: 042
  5. VELETRI [Suspect]
     Active Substance: EPOPROSTENOL
     Dosage: 12 NG/KG, PER MIN
     Route: 042
  6. LASIX + K [Concomitant]
     Active Substance: FUROSEMIDE\POTASSIUM CHLORIDE
  7. VELETRI [Suspect]
     Active Substance: EPOPROSTENOL
     Dosage: 16 NG/KG, PER MIN
     Route: 042
  8. SILDENAFIL CITRATE. [Concomitant]
     Active Substance: SILDENAFIL CITRATE
  9. VELETRI [Suspect]
     Active Substance: EPOPROSTENOL
     Route: 042
  10. LETAIRIS [Concomitant]
     Active Substance: AMBRISENTAN

REACTIONS (25)
  - Bone cancer [Unknown]
  - Dyspnoea exertional [Unknown]
  - Myalgia [Unknown]
  - Dizziness [Unknown]
  - Pulmonary hypertension [Unknown]
  - Eye swelling [Unknown]
  - Fatigue [Unknown]
  - Catheter site pain [Unknown]
  - Fluid retention [Unknown]
  - Headache [Unknown]
  - Nasopharyngitis [Unknown]
  - Diarrhoea [Not Recovered/Not Resolved]
  - Pain in extremity [Unknown]
  - Catheter site rash [Unknown]
  - Flushing [Not Recovered/Not Resolved]
  - Catheter site pruritus [Unknown]
  - Arthralgia [Not Recovered/Not Resolved]
  - Arthropod bite [Unknown]
  - Folliculitis [Unknown]
  - Catheter site mass [Unknown]
  - Weight increased [Unknown]
  - Pain in jaw [Not Recovered/Not Resolved]
  - Catheter site scab [Unknown]
  - Catheter site discharge [Unknown]
  - Malaise [Unknown]

NARRATIVE: CASE EVENT DATE: 20191014
